FAERS Safety Report 8134126-6 (Version None)
Quarter: 2012Q1

REPORT INFORMATION
  Report Type: 
  Country: None (occurrence: None)
  Receive Date: 20120214
  Receipt Date: 20120131
  Transmission Date: 20120608
  Serious: Yes (Hospitalization, Other)
  Sender: FDA-Public Use
  Company Number: BE-RANBAXY-2012RR-52575

PATIENT
  Age: 34 Year
  Sex: Female

DRUGS (3)
  1. VENLAFAXINE [Suspect]
     Dosage: UP TO 7.5 G, EXTENDED-RELEASE
     Route: 048
  2. VENLAFAXINE [Suspect]
     Dosage: UP TO 3.75 G, IMMEDIATE RELEASE
     Route: 048
  3. ACETAMINOPHEN [Suspect]
     Indication: PRODUCT USED FOR UNKNOWN INDICATION
     Route: 048

REACTIONS (6)
  - OVERDOSE [None]
  - RENAL FAILURE ACUTE [None]
  - CONVULSION [None]
  - CARDIOMYOPATHY [None]
  - RHABDOMYOLYSIS [None]
  - SEROTONIN SYNDROME [None]
